FAERS Safety Report 5228142-1 (Version None)
Quarter: 2007Q1

REPORT INFORMATION
  Report Type: 
  Country: None (occurrence: None)
  Receive Date: 20070130
  Receipt Date: 20070119
  Transmission Date: 20070707
  Serious: Yes (Other)
  Sender: FDA-Public Use
  Company Number: 2007304027

PATIENT
  Age: 4 Year
  Sex: Male
  Weight: 19.1 kg

DRUGS (1)
  1. BENADRYL [Suspect]
     Dosage: 8 BENADRYL FASTMELT TABLETS AT ONCE (1 IN 1 D), ORAL
     Route: 048
     Dates: start: 20070119, end: 20070119

REACTIONS (4)
  - ACCIDENTAL DRUG INTAKE BY CHILD [None]
  - DEHYDRATION [None]
  - HYPERSOMNIA [None]
  - SOMNOLENCE [None]
